FAERS Safety Report 13820084 (Version 4)
Quarter: 2017Q3

REPORT INFORMATION
  Report Type: Spontaneous
  Country: JP (occurrence: JP)
  Receive Date: 20170801
  Receipt Date: 20170927
  Transmission Date: 20171127
  Serious: Yes (Life-Threatening, Hospitalization, Other)
  Sender: FDA-Public Use
  Company Number: JP-GLAXOSMITHKLINE-JP2017JPN115264

PATIENT
  Age: 85 Year
  Sex: Female
  Weight: 40 kg

DRUGS (13)
  1. CELECOX [Concomitant]
     Active Substance: CELECOXIB
     Dosage: 200 MG, 1D
  2. ALINAMIN F [Concomitant]
     Active Substance: FURSULTIAMINE HYDROCHLORIDE
     Dosage: 75 MG, 1D
  3. ABILIFY [Concomitant]
     Active Substance: ARIPIPRAZOLE
     Dosage: 3 MG, 1D
     Dates: end: 20170722
  4. LAMICTAL [Suspect]
     Active Substance: LAMOTRIGINE
     Indication: BIPOLAR DISORDER
     Dosage: 100 MG, BID
     Route: 048
     Dates: end: 20170722
  5. LAMICTAL [Suspect]
     Active Substance: LAMOTRIGINE
     Dosage: 25 MG, BID
     Route: 048
     Dates: start: 20170728, end: 20170810
  6. ROZEREM [Concomitant]
     Active Substance: RAMELTEON
     Dosage: 8 MG, 1D
  7. AMLODIPINE [Concomitant]
     Active Substance: AMLODIPINE BESYLATE
     Dosage: 1.25 MG, 1D
  8. EBASTEL [Concomitant]
     Active Substance: EBASTINE
     Dosage: 10 MG, 1D
  9. MAGMITT [Concomitant]
     Active Substance: MAGNESIUM OXIDE
     Dosage: 660 MG, 1D
  10. LAMICTAL [Suspect]
     Active Substance: LAMOTRIGINE
     Dosage: 25 MG, QD
     Route: 048
     Dates: start: 20170727, end: 20170727
  11. BUFFERIN [Concomitant]
     Active Substance: ASPIRIN
     Dosage: 81 MG, 1D
  12. URSO [Concomitant]
     Active Substance: URSODIOL
     Dosage: 50 MG, 1D
  13. TAKEPRON OD [Concomitant]
     Active Substance: LANSOPRAZOLE
     Dosage: 1 DF, 1D

REACTIONS (6)
  - Vomiting [Unknown]
  - Femoral neck fracture [Recovering/Resolving]
  - Ileus [Recovered/Resolved]
  - Aspiration [Unknown]
  - Pneumonia aspiration [Recovered/Resolved]
  - Respiratory disorder [Unknown]

NARRATIVE: CASE EVENT DATE: 20170721
